FAERS Safety Report 6082917-8 (Version None)
Quarter: 2009Q1

REPORT INFORMATION
  Report Type: 
  Country: None (occurrence: None)
  Receive Date: 20090218
  Receipt Date: 20090203
  Transmission Date: 20090719
  Serious: Yes (Hospitalization)
  Sender: FDA-Public Use
  Company Number: JP-PFIZER INC-2008161270

PATIENT

DRUGS (4)
  1. LIPITOR [Suspect]
     Indication: HYPERLIPIDAEMIA
     Dosage: 10 MG, UNK
     Route: 048
     Dates: start: 20060327, end: 20071221
  2. ACARBOSE [Suspect]
     Indication: TYPE 2 DIABETES MELLITUS
     Dosage: 100 MG
     Route: 048
     Dates: start: 20070122, end: 20071221
  3. AMARYL [Suspect]
     Indication: TYPE 2 DIABETES MELLITUS
     Dosage: 3 MG, 2X/DAY
     Route: 048
     Dates: start: 20060424, end: 20071221
  4. ADALAT CC [Concomitant]
     Dosage: UNK

REACTIONS (1)
  - HEPATIC FUNCTION ABNORMAL [None]
